FAERS Safety Report 9270303 (Version 2)
Quarter: 2013Q2

REPORT INFORMATION
  Report Type: Spontaneous
  Country: US (occurrence: US)
  Receive Date: 20130503
  Receipt Date: 20130530
  Transmission Date: 20140414
  Serious: Yes (Hospitalization, Other)
  Sender: FDA-Public Use
  Company Number: US-009507513-2012SP015541

PATIENT
  Sex: Female
  Weight: 65.76 kg

DRUGS (2)
  1. NUVARING [Suspect]
     Indication: OVARIAN CYST
     Route: 067
     Dates: start: 20100211, end: 20110505
  2. NUVARING [Suspect]
     Indication: CONTRACEPTION

REACTIONS (18)
  - Psychogenic seizure [Unknown]
  - Pulmonary embolism [Recovering/Resolving]
  - Thrombosis [Unknown]
  - Psychogenic seizure [Unknown]
  - Cholecystectomy [Unknown]
  - Conversion disorder [Unknown]
  - Appendicitis [Unknown]
  - Hysterectomy [Unknown]
  - Gastrointestinal infection [Unknown]
  - Bradycardia [Unknown]
  - Tachycardia [Unknown]
  - Mental status changes [Unknown]
  - Off label use [Unknown]
  - Colitis [Unknown]
  - Gallbladder disorder [Unknown]
  - Anaemia of chronic disease [Unknown]
  - Syncope [Unknown]
  - Adjustment disorder [Unknown]
